FAERS Safety Report 5290197-6 (Version None)
Quarter: 2007Q2

REPORT INFORMATION
  Report Type: 
  Country: None (occurrence: None)
  Receive Date: 20070402
  Receipt Date: 20070319
  Transmission Date: 20071010
  Serious: Yes (Hospitalization)
  Sender: FDA-Public Use
  Company Number: 2007RL000120

PATIENT
  Age: 47 Year
  Sex: Male
  Weight: 77.1115 kg

DRUGS (5)
  1. OMACOR [Suspect]
     Indication: BLOOD TRIGLYCERIDES INCREASED
     Dosage: 2 GM;QD;PO;  1 GM;QD;PO
     Route: 048
     Dates: start: 20061201, end: 20070101
  2. OMACOR [Suspect]
     Indication: BLOOD TRIGLYCERIDES INCREASED
     Dosage: 2 GM;QD;PO;  1 GM;QD;PO
     Route: 048
     Dates: start: 20070101, end: 20070301
  3. TRICOR /00499301/ [Concomitant]
  4. ZETIA [Concomitant]
  5. DIOVAN /01319601/ [Concomitant]

REACTIONS (13)
  - ABDOMINAL TENDERNESS [None]
  - ANGINA PECTORIS [None]
  - ANOREXIA [None]
  - ARRHYTHMIA [None]
  - BLOOD PRESSURE INCREASED [None]
  - CONSTIPATION [None]
  - DEPRESSION [None]
  - DIARRHOEA [None]
  - DIZZINESS [None]
  - HYPOAESTHESIA FACIAL [None]
  - NERVOUSNESS [None]
  - TREATMENT NONCOMPLIANCE [None]
  - WEIGHT DECREASED [None]
